FAERS Safety Report 4453668-8 (Version None)
Quarter: 2004Q3

REPORT INFORMATION
  Report Type: 
  Country: None (occurrence: None)
  Receive Date: 20040920
  Receipt Date: 20040819
  Transmission Date: 20050211
  Serious: Yes (Hospitalization)
  Sender: FDA-Public Use
  Company Number: US-AMGEN-US087942

PATIENT
  Sex: Female

DRUGS (8)
  1. ETANERCEPT [Suspect]
     Indication: PSORIASIS
     Route: 058
     Dates: start: 20040513, end: 20040801
  2. LOVENOX [Suspect]
  3. LASIX [Concomitant]
     Dates: start: 20030101
  4. LOTREL (NOVARTIS PHARMACEUTICALS) [Concomitant]
  5. PROTONIX [Concomitant]
  6. SYNTHROID [Concomitant]
  7. GLUCOTROL [Concomitant]
  8. ZOLOFT [Concomitant]

REACTIONS (5)
  - ATRIAL FIBRILLATION [None]
  - CARDIAC FAILURE CONGESTIVE [None]
  - CONDITION AGGRAVATED [None]
  - FLUID RETENTION [None]
  - PLEURAL EFFUSION [None]
